FAERS Safety Report 5146168-3 (Version None)
Quarter: 2006Q4

REPORT INFORMATION
  Report Type: 
  Country: None (occurrence: None)
  Receive Date: 20061106
  Receipt Date: 20061106
  Transmission Date: 20070319
  Serious: Yes (Life-Threatening, Hospitalization, Other)
  Sender: FDA-Public Use
  Company Number: None

PATIENT
  Sex: Female
  Weight: 65.7716 kg

DRUGS (2)
  1. AZULFIDINE [Suspect]
     Indication: COLITIS
     Dosage: ONE OR TWO   DAILY   PO
     Route: 048
     Dates: start: 19850923, end: 20061024
  2. AZULFIDINE [Suspect]
     Indication: CROHN'S DISEASE
     Dosage: ONE OR TWO   DAILY   PO
     Route: 048
     Dates: start: 19850923, end: 20061024

REACTIONS (6)
  - DEPRESSION [None]
  - EMOTIONAL DISORDER [None]
  - HALLUCINATION, AUDITORY [None]
  - HALLUCINATION, VISUAL [None]
  - HEADACHE [None]
  - VERTIGO [None]
